FAERS Safety Report 18592154 (Version 8)
Quarter: 2022Q2

REPORT INFORMATION
  Report Type: Report from Study
  Country: DE (occurrence: DE)
  Receive Date: 20201208
  Receipt Date: 20220513
  Transmission Date: 20220720
  Serious: Yes (Hospitalization, Other)
  Sender: FDA-Public Use
  Company Number: DE-TAKEDA-2020TUS053717

PATIENT
  Age: 74 Year
  Sex: Female
  Weight: 72 kg

DRUGS (12)
  1. PARATHYROID HORMONE [Suspect]
     Active Substance: PARATHYROID HORMONE
     Indication: Hypoparathyroidism
     Dosage: 75 MICROGRAM, QD
     Route: 058
     Dates: start: 20180529
  2. PARATHYROID HORMONE [Suspect]
     Active Substance: PARATHYROID HORMONE
     Indication: Hypoparathyroidism
     Dosage: 75 MICROGRAM, QD
     Route: 058
     Dates: start: 20180529
  3. PARATHYROID HORMONE [Suspect]
     Active Substance: PARATHYROID HORMONE
     Indication: Hypoparathyroidism
     Dosage: 75 MICROGRAM, QD
     Route: 058
     Dates: start: 20180529
  4. PARATHYROID HORMONE [Suspect]
     Active Substance: PARATHYROID HORMONE
     Dosage: 75 MICROGRAM, QD
     Route: 058
     Dates: start: 20180529
  5. PARATHYROID HORMONE [Suspect]
     Active Substance: PARATHYROID HORMONE
     Dosage: 75 MICROGRAM, QD
     Route: 058
     Dates: start: 20180529
  6. PARATHYROID HORMONE [Suspect]
     Active Substance: PARATHYROID HORMONE
     Dosage: 75 MICROGRAM, QD
     Route: 058
     Dates: start: 20180529
  7. PARATHYROID HORMONE [Suspect]
     Active Substance: PARATHYROID HORMONE
     Dosage: 100 MICROGRAM, QD
     Route: 058
     Dates: start: 20180529
  8. PARATHYROID HORMONE [Suspect]
     Active Substance: PARATHYROID HORMONE
     Dosage: 100 MICROGRAM, QD
     Route: 058
     Dates: start: 20180529
  9. PARATHYROID HORMONE [Suspect]
     Active Substance: PARATHYROID HORMONE
     Dosage: 100 MICROGRAM, QD
     Route: 058
     Dates: start: 20180529
  10. LEVOTHYROXINE SODIUM [Concomitant]
     Active Substance: LEVOTHYROXINE SODIUM
     Indication: Thyroidectomy
     Dosage: 100 MICROGRAM, QD
     Route: 048
  11. FRUBIASE CALCIUM FORTE [Concomitant]
     Indication: Hypoparathyroidism
     Dosage: UNK
     Route: 048
  12. CHOLECALCIFEROL [Concomitant]
     Active Substance: CHOLECALCIFEROL
     Indication: Hypoparathyroidism
     Dosage: 2 DOSAGE FORM, QD
     Route: 048
     Dates: start: 20210415

REACTIONS (10)
  - Postoperative adhesion [Recovered/Resolved]
  - Blood calcium decreased [Recovered/Resolved]
  - Paraesthesia [Recovered/Resolved]
  - Vitamin D decreased [Not Recovered/Not Resolved]
  - Hypocalcaemia [Recovered/Resolved]
  - Pain in extremity [Recovered/Resolved]
  - Tachycardia [Recovered/Resolved]
  - Hypercalcaemia [Recovered/Resolved]
  - Heart rate increased [Recovered/Resolved]
  - Lymphadenopathy [Recovered/Resolved]

NARRATIVE: CASE EVENT DATE: 20201001
